FAERS Safety Report 14160990 (Version 1)
Quarter: 2017Q4

REPORT INFORMATION
  Report Type: Report from Study
  Country: JP (occurrence: JP)
  Receive Date: 20171106
  Receipt Date: 20171106
  Transmission Date: 20180321
  Serious: Yes (Hospitalization)
  Sender: FDA-Public Use
  Company Number: JP-SA-2017SA211495

PATIENT
  Age: 60 Year
  Sex: Female

DRUGS (11)
  1. PHOSBLOCK [Suspect]
     Active Substance: FERRIC HYDROXIDE
     Route: 048
     Dates: start: 20150603
  2. DARBEPOETIN ALFA [Suspect]
     Active Substance: DARBEPOETIN ALFA
     Route: 042
     Dates: start: 20150729, end: 20150805
  3. DARBEPOETIN ALFA [Suspect]
     Active Substance: DARBEPOETIN ALFA
     Route: 042
     Dates: start: 20150909, end: 20160113
  4. DARBEPOETIN ALFA [Suspect]
     Active Substance: DARBEPOETIN ALFA
     Route: 042
     Dates: start: 20160803, end: 20170201
  5. ROCALTROL [Suspect]
     Active Substance: CALCITRIOL
     Route: 042
     Dates: start: 20160801, end: 20170306
  6. DARBEPOETIN ALFA [Suspect]
     Active Substance: DARBEPOETIN ALFA
     Route: 042
     Dates: start: 20150617, end: 20150701
  7. DARBEPOETIN ALFA [Suspect]
     Active Substance: DARBEPOETIN ALFA
     Route: 042
     Dates: start: 20150819, end: 20150902
  8. DARBEPOETIN ALFA [Suspect]
     Active Substance: DARBEPOETIN ALFA
     Route: 042
     Dates: start: 20160706, end: 20160727
  9. REGPARA [Suspect]
     Active Substance: CINACALCET HYDROCHLORIDE
     Route: 048
     Dates: start: 20151002
  10. DARBEPOETIN ALFA [Suspect]
     Active Substance: DARBEPOETIN ALFA
     Route: 042
     Dates: start: 20150527, end: 20150610
  11. DARBEPOETIN ALFA [Suspect]
     Active Substance: DARBEPOETIN ALFA
     Route: 042
     Dates: start: 20150708, end: 20150722

REACTIONS (3)
  - Hospitalisation [Recovering/Resolving]
  - Angina pectoris [Recovering/Resolving]
  - Hospitalisation [Recovering/Resolving]

NARRATIVE: CASE EVENT DATE: 20151203
